FAERS Safety Report 8968169 (Version 2)
Quarter: 2012Q4

REPORT INFORMATION
  Report Type: 
  Country: US (occurrence: US)
  Receive Date: 20121217
  Receipt Date: 20121220
  Transmission Date: 20130627
  Serious: Yes (Other)
  Sender: FDA-Public Use
  Company Number: US-PFIZER INC-2012314081

PATIENT
  Age: 45 Year
  Sex: Male
  Weight: 54.42 kg

DRUGS (4)
  1. REVATIO [Suspect]
     Indication: PULMONARY HYPERTENSION
     Dosage: 20 mg, 3x/day
     Route: 048
     Dates: start: 2006
  2. TRACLEER [Concomitant]
     Dosage: UNK
  3. REMODULIN [Concomitant]
     Indication: PULMONARY HYPERTENSION NOS
     Dosage: UNK
  4. WARFARIN [Concomitant]
     Dosage: UNK

REACTIONS (1)
  - Arrhythmia [Unknown]
